FAERS Safety Report 9556901 (Version 1)
Quarter: 2013Q3

REPORT INFORMATION
  Report Type: Spontaneous
  Country: US (occurrence: None)
  Receive Date: 20130906
  Receipt Date: 20130906
  Transmission Date: 20140515
  Serious: Yes (Hospitalization, Other)
  Sender: FDA-Public Use
  Company Number: 163-POMAL-13052408

PATIENT
  Age: 71 Year
  Sex: Female

DRUGS (22)
  1. POMALYST [Suspect]
     Indication: PLASMA CELL MYELOMA
     Dosage: 4 MG, 21 IN 21 D, PO
     Route: 048
     Dates: start: 20130305
  2. NITROGLYCERIN (GLYCERYL TRINITRATE) [Concomitant]
  3. ASPIRIN LOW DOSE [Concomitant]
  4. BUMETANIDE (BUMETANIDE) [Concomitant]
  5. CALCIUM + D (OS-CAL) [Concomitant]
  6. CITALOPRAM HYDROBROMIDE (CITALOPRAM HYDROBROMIDE) [Concomitant]
  7. DEXAMETHASONE (DEXAMETHASONE) [Concomitant]
  8. HYDROCORTISONE (HYDROCORTISONE) [Concomitant]
  9. LISINOPRIL (LISINOPRIL) [Concomitant]
  10. METFORMIN HCL (METFORMIN HYDROCLORIDE) [Concomitant]
  11. AMLODIPINE (AMLODIPINE) [Concomitant]
  12. COUMADIN (WARFARIN SODIUM) [Concomitant]
  13. METOPROLOL (METOPROLOL) [Concomitant]
  14. PRAVASTATIN (PRAVASTATIN) [Concomitant]
  15. LORTAB (VICODIN) [Concomitant]
  16. MAGNESIUM OXIDE (MAGNESIUM OXIDE) [Concomitant]
  17. RANITIDINE (RANITIDINE) [Concomitant]
  18. METAGLIP (METAGLIP) [Concomitant]
  19. INSULIN NPH (INSULIN) [Concomitant]
  20. VITAMIN B12 WITH FOLIC ACID (FOLGAMMA ^ANKERMANN^) [Concomitant]
  21. NOVOLIN (INSULIN HUMAN INJECTION, ISOPHANE) [Concomitant]
  22. OXYBUTYNIN (OXYBUTYNIN) [Concomitant]

REACTIONS (4)
  - Atrial fibrillation [None]
  - Bronchitis [None]
  - Renal failure acute [None]
  - Cellulitis [None]
